FAERS Safety Report 10966824 (Version 1)
Quarter: 2015Q1

REPORT INFORMATION
  Report Type: Spontaneous
  Country: JP (occurrence: JP)
  Receive Date: 20150330
  Receipt Date: 20150330
  Transmission Date: 20150721
  Serious: Yes (Life-Threatening, Other)
  Sender: FDA-Public Use
  Company Number: JP-ASTRAZENECA-2015SE29520

PATIENT
  Age: 40 Year
  Sex: Male

DRUGS (3)
  1. AGENTS AFFECTING DIGESTIVE ORGANS [Concomitant]
     Dates: start: 20150323, end: 20150323
  2. HYPNOTIC-SEDATIVE/ANTIANXIETY [Concomitant]
     Dates: start: 20150323, end: 20150323
  3. SEROQUEL [Suspect]
     Active Substance: QUETIAPINE FUMARATE
     Route: 048
     Dates: start: 20150323, end: 20150323

REACTIONS (3)
  - Somnolence [Unknown]
  - Intentional overdose [Unknown]
  - Suicide attempt [Unknown]

NARRATIVE: CASE EVENT DATE: 20150323
